FAERS Safety Report 11287959 (Version 1)
Quarter: 2015Q3

REPORT INFORMATION
  Report Type: Spontaneous
  Country: US (occurrence: None)
  Receive Date: 20150720
  Receipt Date: 20150720
  Transmission Date: 20151125
  Serious: Yes (Hospitalization)
  Sender: FDA-Public Use
  Company Number: None

PATIENT
  Age: 38 Year
  Sex: Male
  Weight: 102.06 kg

DRUGS (14)
  1. ASPIRIN. [Concomitant]
     Active Substance: ASPIRIN
  2. CO-Q10 [Concomitant]
  3. MELATONIN [Concomitant]
     Active Substance: MELATONIN
  4. ADVAIR HFA [Concomitant]
     Active Substance: FLUTICASONE PROPIONATE\SALMETEROL XINAFOATE
  5. VENTOLIN [Concomitant]
     Active Substance: ALBUTEROL SULFATE
  6. SELENIUM [Concomitant]
     Active Substance: SELENIUM
  7. ATENOLOL. [Concomitant]
     Active Substance: ATENOLOL
  8. ATORVASTATIN [Concomitant]
     Active Substance: ATORVASTATIN
  9. LISINOPRIL-HCTZ [Concomitant]
     Active Substance: HYDROCHLOROTHIAZIDE\LISINOPRIL
  10. NIACIN. [Concomitant]
     Active Substance: NIACIN
  11. FLUOXETINE HCL [Suspect]
     Active Substance: FLUOXETINE HYDROCHLORIDE
     Indication: OBSESSIVE-COMPULSIVE DISORDER
     Dosage: 2 PILLS
     Route: 048
     Dates: start: 20150701, end: 20150713
  12. FLUOXETINE HCL [Suspect]
     Active Substance: FLUOXETINE HYDROCHLORIDE
     Indication: DEPRESSION
     Dosage: 2 PILLS
     Route: 048
     Dates: start: 20150701, end: 20150713
  13. LORAZEPAM. [Concomitant]
     Active Substance: LORAZEPAM
  14. TURMERIC [Concomitant]
     Active Substance: TURMERIC

REACTIONS (7)
  - Extrasystoles [None]
  - Supraventricular extrasystoles [None]
  - Palpitations [None]
  - Blood potassium decreased [None]
  - Blood magnesium decreased [None]
  - Electrocardiogram T wave abnormal [None]
  - Ventricular extrasystoles [None]

NARRATIVE: CASE EVENT DATE: 20150714
